FAERS Safety Report 10363917 (Version 2)
Quarter: 2014Q3

REPORT INFORMATION
  Report Type: Report from Study
  Country: US (occurrence: US)
  Receive Date: 20140805
  Receipt Date: 20140812
  Transmission Date: 20150326
  Serious: Yes (Congenital Anomaly, Other)
  Sender: FDA-Public Use
  Company Number: US-ABBVIE-14P-163-1266834-00

PATIENT
  Age: 1 Day
  Sex: Male

DRUGS (1)
  1. LUPRON DEPOT [Suspect]
     Active Substance: LEUPROLIDE ACETATE
     Indication: MATERNAL EXPOSURE TIMING UNSPECIFIED
     Route: 064

REACTIONS (10)
  - Fungal oesophagitis [Recovered/Resolved]
  - Anomaly of middle ear congenital [Not Recovered/Not Resolved]
  - Congenital cutis laxa [Recovered/Resolved]
  - Tympanic membrane disorder [Recovered/Resolved]
  - Foetal exposure during pregnancy [Unknown]
  - Ear infection [Recovered/Resolved]
  - Tympanic membrane perforation [Recovered/Resolved with Sequelae]
  - Blister [Recovered/Resolved]
  - Ear congestion [Recovered/Resolved]
  - Cryptorchism [Not Recovered/Not Resolved]

NARRATIVE: CASE EVENT DATE: 200007
